FAERS Safety Report 14733416 (Version 1)
Quarter: 2018Q2

REPORT INFORMATION
  Report Type: Spontaneous
  Country: ES (occurrence: ES)
  Receive Date: 20180409
  Receipt Date: 20180409
  Transmission Date: 20180711
  Serious: Yes (Life-Threatening, Hospitalization, Other)
  Sender: FDA-Public Use
  Company Number: ES-MYLANLABS-2018M1020630

PATIENT
  Age: 24 Year
  Sex: Female

DRUGS (4)
  1. TOPIRAMATE. [Suspect]
     Active Substance: TOPIRAMATE
     Indication: PERSONALITY DISORDER
     Dosage: UNK
  2. CLORAZEPIC ACID [Suspect]
     Active Substance: CLORAZEPIC ACID
     Indication: PERSONALITY DISORDER
     Dosage: UNK
  3. DULOXETINE. [Suspect]
     Active Substance: DULOXETINE
     Indication: PERSONALITY DISORDER
     Dosage: UNK
  4. QUETIAPINE. [Suspect]
     Active Substance: QUETIAPINE
     Indication: PERSONALITY DISORDER
     Dosage: UNK

REACTIONS (4)
  - Intentional overdose [Unknown]
  - Loss of consciousness [Unknown]
  - Coma blister [Recovered/Resolved]
  - Blood creatine phosphokinase increased [Unknown]
